FAERS Safety Report 9548146 (Version 1)
Quarter: 2013Q3

REPORT INFORMATION
  Report Type: Spontaneous
  Country: FR (occurrence: FR)
  Receive Date: 20130924
  Receipt Date: 20130924
  Transmission Date: 20140515
  Serious: Yes (Other)
  Sender: FDA-Public Use
  Company Number: FR-SANOFI-AVENTIS-2013SA092594

PATIENT
  Age: 63 Year
  Sex: Female

DRUGS (2)
  1. LANTUS SOLOSTAR [Suspect]
     Indication: DIABETES MELLITUS
     Dosage: 6 TO 30 IU PER DAY
     Route: 058
     Dates: start: 201212, end: 201308
  2. SOLOSTAR [Concomitant]
     Indication: DEVICE THERAPY
     Dates: start: 201212, end: 201308

REACTIONS (10)
  - Lymphadenopathy [Recovering/Resolving]
  - Paraesthesia oral [Recovering/Resolving]
  - Dizziness [Recovering/Resolving]
  - Decreased appetite [Recovering/Resolving]
  - Ageusia [Recovering/Resolving]
  - Respiratory disorder [Recovering/Resolving]
  - Dyspnoea [Recovering/Resolving]
  - Asphyxia [Recovering/Resolving]
  - Respiratory disorder [Recovering/Resolving]
  - Injection site pain [Recovering/Resolving]
